FAERS Safety Report 24236681 (Version 2)
Quarter: 2024Q3

REPORT INFORMATION
  Report Type: Spontaneous
  Country: US (occurrence: US)
  Receive Date: 20240822
  Receipt Date: 20240822
  Transmission Date: 20241017
  Serious: Yes (Other)
  Sender: ROCHE
  Company Number: US-ROCHE-10000055785

PATIENT

DRUGS (1)
  1. ERIVEDGE [Suspect]
     Active Substance: VISMODEGIB
     Indication: Basal cell carcinoma
     Route: 065

REACTIONS (10)
  - Muscle spasms [Unknown]
  - Fatigue [Unknown]
  - Oral pain [Unknown]
  - Tongue disorder [Unknown]
  - Decreased appetite [Unknown]
  - Weight decreased [Unknown]
  - Muscle atrophy [Unknown]
  - Alopecia [Unknown]
  - Basal cell carcinoma [Unknown]
  - Therapy non-responder [Unknown]
